FAERS Safety Report 8640969 (Version 4)
Quarter: 2013Q1

REPORT INFORMATION
  Report Type: Report from Study
  Country: FR (occurrence: FR)
  Receive Date: 20120628
  Receipt Date: 20130311
  Transmission Date: 20140127
  Serious: Yes (Hospitalization)
  Sender: FDA-Public Use
  Company Number: PHHY2012FR055010

PATIENT
  Age: 59 Year
  Sex: Male
  Weight: 77 kg

DRUGS (7)
  1. EVEROLIMUS [Suspect]
     Indication: RENAL CANCER METASTATIC
     Dosage: 5 MG, DAILY
     Route: 048
     Dates: start: 20111118, end: 20120402
  2. PREVISCAN [Concomitant]
  3. HEMIGOXINE [Concomitant]
  4. LEVOTHYROX [Concomitant]
     Dosage: 50 UG, UNK
  5. MAXEPA [Concomitant]
     Dosage: 2 DF, BID
  6. TAREG [Concomitant]
     Dosage: 160 MG, UNK
  7. TAHOR [Concomitant]
     Indication: HYPERCHOLESTEROLAEMIA

REACTIONS (2)
  - Angiodermatitis [Recovered/Resolved]
  - Skin ulcer [Unknown]
